FAERS Safety Report 18538277 (Version 2)
Quarter: 2020Q4

REPORT INFORMATION
  Report Type: Spontaneous
  Country: JP (occurrence: JP)
  Receive Date: 20201123
  Receipt Date: 20201202
  Transmission Date: 20210114
  Serious: Yes (Hospitalization, Other)
  Sender: FDA-Public Use
  Company Number: JP-009507513-2011JPN001932J

PATIENT
  Age: 50 Year
  Sex: Male

DRUGS (1)
  1. KEYTRUDA [Suspect]
     Active Substance: PEMBROLIZUMAB
     Indication: HEAD AND NECK CANCER
     Dosage: 400 MILLIGRAM, EVERY 6 WEEKS
     Route: 041
     Dates: start: 202010, end: 202010

REACTIONS (4)
  - Vagus nerve paralysis [Unknown]
  - Interstitial lung disease [Unknown]
  - Glossopharyngeal nerve paralysis [Unknown]
  - Cranial nerve palsies multiple [Unknown]

NARRATIVE: CASE EVENT DATE: 2020
